FAERS Safety Report 10414305 (Version 1)
Quarter: 2014Q3

REPORT INFORMATION
  Report Type: Spontaneous
  Country: IT (occurrence: IT)
  Receive Date: 20140828
  Receipt Date: 20140828
  Transmission Date: 20150326
  Serious: Yes (Death, Other)
  Sender: FDA-Public Use
  Company Number: PHHY2014IT104205

PATIENT
  Age: 65 Year
  Sex: Male

DRUGS (6)
  1. QUETIAPINE [Concomitant]
     Active Substance: QUETIAPINE
     Dosage: 25 MG, PER DAY
  2. ROPINIROLE. [Suspect]
     Active Substance: ROPINIROLE
     Dosage: 4 MG, PER DAY
  3. LEVODOPA [Suspect]
     Active Substance: LEVODOPA
     Dosage: 400 MG, PER DAY
  4. LEVODOPA [Suspect]
     Active Substance: LEVODOPA
     Dosage: 600 MG, DAILY
  5. ROPINIROLE. [Suspect]
     Active Substance: ROPINIROLE
     Dosage: 8 MG, PER DAY
  6. LEVODOPA [Suspect]
     Active Substance: LEVODOPA
     Dosage: 1000 MG, PER DAY

REACTIONS (9)
  - Alcohol abuse [Recovering/Resolving]
  - Dopamine dysregulation syndrome [Recovering/Resolving]
  - Polydipsia [Unknown]
  - Pyrexia [Unknown]
  - Pathological gambling [Recovering/Resolving]
  - Dyskinesia [Unknown]
  - Pneumonia [Fatal]
  - Electrolyte imbalance [Unknown]
  - Delirium [Unknown]
